FAERS Safety Report 6488025-6 (Version None)
Quarter: 2009Q4

REPORT INFORMATION
  Report Type: 
  Country: None (occurrence: None)
  Receive Date: 20091210
  Receipt Date: 20091201
  Transmission Date: 20100525
  Serious: Yes (Other)
  Sender: FDA-Public Use
  Company Number: PHHY2009JP47554

PATIENT
  Sex: Male
  Weight: 67 kg

DRUGS (3)
  1. ZOMETA [Suspect]
     Indication: METASTASES TO BONE
     Dosage: UNK
     Route: 042
     Dates: start: 20071107, end: 20090424
  2. CHEMOTHERAPEUTICS NOS [Concomitant]
  3. TAXOL [Concomitant]

REACTIONS (7)
  - BLADDER NEOPLASM SURGERY [None]
  - GINGIVAL BLEEDING [None]
  - GINGIVAL SWELLING [None]
  - OSTEOARTHRITIS [None]
  - OSTEOMYELITIS [None]
  - PERIODONTITIS [None]
  - TOOTHACHE [None]
